FAERS Safety Report 21363700 (Version 3)
Quarter: 2023Q2

REPORT INFORMATION
  Report Type: Report from Study
  Country: US (occurrence: US)
  Receive Date: 20220922
  Receipt Date: 20230525
  Transmission Date: 20230721
  Serious: Yes (Other)
  Sender: FDA-Public Use
  Company Number: US-ABBVIE-4127749

PATIENT
  Age: 57 Year
  Sex: Female

DRUGS (6)
  1. HUMIRA [Suspect]
     Active Substance: ADALIMUMAB
     Indication: Psoriatic arthropathy
     Route: 058
     Dates: start: 20221003
  2. HUMIRA [Suspect]
     Active Substance: ADALIMUMAB
     Indication: Ankylosing spondylitis
     Dosage: CITRATE FREE; THE EVENTS OF FLARE UP, MORE PAIN, STIFFNESS AND THIRD COVID VACCINE CAUSED SWELLIN...
     Route: 058
     Dates: start: 20220205
  3. HUMIRA [Suspect]
     Active Substance: ADALIMUMAB
     Dosage: CITRATE FREE
     Route: 058
     Dates: start: 20220205
  4. PFIZER-BIONTECH COVID-19 VACCINE [Suspect]
     Active Substance: TOZINAMERAN
     Indication: COVID-19 immunisation
     Dosage: FIRST DOSE; FREQUENCY: ONE TIME ONCE
     Route: 030
     Dates: start: 20210212, end: 20220212
  5. PFIZER-BIONTECH COVID-19 VACCINE [Suspect]
     Active Substance: TOZINAMERAN
     Indication: COVID-19 immunisation
     Dosage: SECOND DOSE, FREQUENCY: ONE TIME ONCE
     Route: 030
     Dates: start: 20210305, end: 20210305
  6. PFIZER-BIONTECH COVID-19 VACCINE [Suspect]
     Active Substance: TOZINAMERAN
     Indication: COVID-19 immunisation
     Dosage: THIRD DOSE ; FREQUENCY: ONE TIME ONCE
     Route: 030
     Dates: start: 20211031, end: 20211031

REACTIONS (9)
  - COVID-19 [Recovered/Resolved]
  - Axillary mass [Recovered/Resolved]
  - Lymphadenopathy [Unknown]
  - Condition aggravated [Not Recovered/Not Resolved]
  - Gastrointestinal haemorrhage [Recovered/Resolved]
  - Pain [Unknown]
  - Musculoskeletal stiffness [Unknown]
  - Wheezing [Unknown]
  - Sinus congestion [Unknown]

NARRATIVE: CASE EVENT DATE: 20230106
